FAERS Safety Report 14544957 (Version 1)
Quarter: 2018Q1

REPORT INFORMATION
  Report Type: Spontaneous
  Country: US (occurrence: US)
  Receive Date: 20180216
  Receipt Date: 20180216
  Transmission Date: 20180509
  Serious: Yes (Life-Threatening, Disabling)
  Sender: FDA-Public Use
  Company Number: None

PATIENT
  Sex: Female
  Weight: 59.85 kg

DRUGS (2)
  1. DAILY VITAMINS ^ONE A DAY^ [Concomitant]
     Active Substance: VITAMINS
  2. CEFDINIR. [Suspect]
     Active Substance: CEFDINIR
     Indication: EAR INFECTION
     Dosage: ?          QUANTITY:30 CAPSULE(S);?
     Route: 048

REACTIONS (5)
  - Dizziness [None]
  - Cardiac murmur [None]
  - Atrial flutter [None]
  - Palpitations [None]
  - Tricuspid valve incompetence [None]

NARRATIVE: CASE EVENT DATE: 20171112
